FAERS Safety Report 21929626 (Version 1)
Quarter: 2023Q1

REPORT INFORMATION
  Report Type: Spontaneous
  Country: US (occurrence: US)
  Receive Date: 20230131
  Receipt Date: 20230131
  Transmission Date: 20230418
  Serious: Yes (Other)
  Sender: FDA-Public Use
  Company Number: US-STRIDES ARCOLAB LIMITED-2022SP012279

PATIENT
  Age: 78 Year
  Sex: Female

DRUGS (4)
  1. MYCOPHENOLATE MOFETIL [Suspect]
     Active Substance: MYCOPHENOLATE MOFETIL
     Indication: Scleroderma
     Dosage: UNK
     Route: 065
  2. APREMILAST [Suspect]
     Active Substance: APREMILAST
     Indication: Scleroderma
     Dosage: UNK
     Route: 065
  3. HYDROXYCHLOROQUINE [Suspect]
     Active Substance: HYDROXYCHLOROQUINE
     Indication: Scleroderma
     Dosage: UNK
     Route: 065
  4. DURVALUMAB [Concomitant]
     Active Substance: DURVALUMAB
     Indication: Squamous cell carcinoma of lung
     Dosage: UNK (12 TREATMENTS)
     Route: 065

REACTIONS (1)
  - Drug ineffective for unapproved indication [Unknown]
